FAERS Safety Report 9758427 (Version 2)
Quarter: 2013Q4

REPORT INFORMATION
  Report Type: Spontaneous
  Country: AU (occurrence: AU)
  Receive Date: 20131216
  Receipt Date: 20131216
  Transmission Date: 20140711
  Serious: Yes (Hospitalization, Other)
  Sender: FDA-Public Use
  Company Number: AU-JNJFOC-20131105904

PATIENT
  Age: 71 Year
  Sex: Male

DRUGS (8)
  1. XARELTO [Suspect]
     Indication: ATRIAL FIBRILLATION
     Route: 048
     Dates: start: 20120928
  2. XARELTO [Suspect]
     Indication: CEREBROVASCULAR ACCIDENT PROPHYLAXIS
     Route: 048
     Dates: start: 20120928
  3. ASTRIX [Concomitant]
     Route: 065
  4. CRESTOR [Concomitant]
     Route: 065
  5. CANDESARTAN CILEXETIL [Concomitant]
     Route: 065
  6. BETALOC [Concomitant]
     Route: 065
  7. PANADOL OSTEO [Concomitant]
     Route: 065
  8. SOMAC [Concomitant]
     Route: 065

REACTIONS (5)
  - Gastrointestinal haemorrhage [Recovered/Resolved]
  - Blood urine present [Recovered/Resolved]
  - Haematochezia [Recovered/Resolved]
  - Palpitations [Recovered/Resolved]
  - Headache [Unknown]
